FAERS Safety Report 5351436-6 (Version None)
Quarter: 2007Q2

REPORT INFORMATION
  Report Type: 
  Country: None (occurrence: None)
  Receive Date: 20070521
  Receipt Date: 20070221
  Transmission Date: 20071010
  Serious: No
  Sender: FDA-Public Use
  Company Number: WAES 0612USA02976

PATIENT
  Age: 82 Year
  Sex: Female

DRUGS (6)
  1. JANUVIA [Suspect]
     Indication: DIABETES MELLITUS
     Dosage: 25 MG/DAILY/PO
     Route: 048
     Dates: start: 20061228
  2. AMBIEN [Concomitant]
  3. EFFEXOR [Concomitant]
  4. GLUCOTROL [Concomitant]
  5. VYTORIN [Concomitant]
  6. ENALAPRIL MALEATE [Concomitant]

REACTIONS (1)
  - TREMOR [None]
